FAERS Safety Report 23854046 (Version 1)
Quarter: 2024Q2

REPORT INFORMATION
  Report Type: Report from Study
  Country: GB (occurrence: GB)
  Receive Date: 20240514
  Receipt Date: 20240514
  Transmission Date: 20240716
  Serious: Yes (Other)
  Sender: FDA-Public Use
  Company Number: GB-002147023-NVSC2024GB101619

PATIENT
  Age: 43 Year
  Sex: Female

DRUGS (1)
  1. KESIMPTA [Suspect]
     Active Substance: OFATUMUMAB
     Indication: Relapsing-remitting multiple sclerosis
     Dosage: 20 MG, QW
     Route: 058
     Dates: start: 20240111

REACTIONS (4)
  - Lower respiratory tract infection [Not Recovered/Not Resolved]
  - Lower respiratory tract congestion [Not Recovered/Not Resolved]
  - Wheezing [Not Recovered/Not Resolved]
  - Sputum discoloured [Not Recovered/Not Resolved]

NARRATIVE: CASE EVENT DATE: 20240206
